FAERS Safety Report 25376415 (Version 3)
Quarter: 2025Q4

REPORT INFORMATION
  Report Type: Spontaneous
  Country: US (occurrence: US)
  Receive Date: 20250529
  Receipt Date: 20251024
  Transmission Date: 20260117
  Serious: Yes (Other)
  Sender: RADIUS PHARM
  Company Number: US-RADIUS HEALTH INC.-US-RADIUS-25048712

PATIENT
  Sex: Female

DRUGS (1)
  1. TYMLOS [Suspect]
     Active Substance: ABALOPARATIDE
     Indication: Senile osteoporosis
     Dosage: 80 MICROGRAM, QD AT NIGHT
     Route: 058
     Dates: start: 20241119

REACTIONS (15)
  - Pleural effusion [Unknown]
  - Aneurysm [Unknown]
  - Infection [Unknown]
  - Cellulitis [Unknown]
  - Pyrexia [Unknown]
  - Tremor [Unknown]
  - Oedema [Unknown]
  - Connective tissue disorder [Unknown]
  - Myalgia [Unknown]
  - Hypotension [Unknown]
  - Nausea [Unknown]
  - Tachycardia [Unknown]
  - Dizziness [Unknown]
  - Palpitations [Unknown]
  - Bone pain [Unknown]

NARRATIVE: CASE EVENT DATE: 20250101
